FAERS Safety Report 5610332-7 (Version None)
Quarter: 2008Q1

REPORT INFORMATION
  Report Type: 
  Country: None (occurrence: None)
  Receive Date: 20080128
  Receipt Date: 20061003
  Transmission Date: 20080703
  Serious: No
  Sender: FDA-Public Use
  Company Number: NL01PV06.00203

PATIENT
  Age: 22 Year
  Sex: Female

DRUGS (2)
  1. PAROXETINE [Suspect]
     Dosage: 25 MG
  2. RABEPRAZOLE SODIUM [Concomitant]

REACTIONS (1)
  - RHABDOMYOLYSIS [None]
